FAERS Safety Report 25379795 (Version 1)
Quarter: 2025Q2

REPORT INFORMATION
  Report Type: Spontaneous
  Country: GR (occurrence: GR)
  Receive Date: 20250530
  Receipt Date: 20250530
  Transmission Date: 20250716
  Serious: Yes (Hospitalization, Other)
  Sender: BAYER HEALTHCARE PHARMACEUTICALS INC.
  Company Number: GR-BAYER-2025A025915

PATIENT
  Age: 38 Year
  Sex: Female
  Weight: 75 kg

DRUGS (2)
  1. DROSPIRENONE [Suspect]
     Active Substance: DROSPIRENONE
     Indication: Menstrual cycle management
     Route: 048
     Dates: start: 20241225, end: 20250201
  2. DROSPIRENONE [Suspect]
     Active Substance: DROSPIRENONE
     Indication: Contraception

REACTIONS (9)
  - Pulmonary embolism [Recovering/Resolving]
  - Haemoptysis [None]
  - Respiratory failure [None]
  - Dyspnoea [Recovering/Resolving]
  - Chest pain [None]
  - Fatigue [None]
  - Vomiting [None]
  - Oxygen saturation decreased [None]
  - Vascular rupture [None]

NARRATIVE: CASE EVENT DATE: 20250131
